FAERS Safety Report 12694087 (Version 1)
Quarter: 2016Q3

REPORT INFORMATION
  Report Type: Spontaneous
  Country: JP (occurrence: JP)
  Receive Date: 20160829
  Receipt Date: 20160829
  Transmission Date: 20161109
  Serious: Yes (Hospitalization)
  Sender: FDA-Public Use
  Company Number: JP-IMPAX LABORATORIES, INC-2016-IPXL-00922

PATIENT
  Age: 83 Year
  Sex: Female

DRUGS (2)
  1. LANSOPRAZOLE. [Concomitant]
     Active Substance: LANSOPRAZOLE
     Indication: PRODUCT USED FOR UNKNOWN INDICATION
     Dosage: 15 MG, DAILY
     Route: 065
  2. MELOXICAM. [Suspect]
     Active Substance: MELOXICAM
     Indication: ARTHRALGIA
     Dosage: 10 MG, DAILY
     Route: 065

REACTIONS (12)
  - Gastrointestinal erosion [Recovering/Resolving]
  - Helicobacter infection [Unknown]
  - Anaemia [Unknown]
  - Hiatus hernia [Unknown]
  - Gastrointestinal haemorrhage [Unknown]
  - Haematochezia [Unknown]
  - Shock [Recovered/Resolved]
  - Pyrexia [Unknown]
  - Gastrointestinal disorder [Recovering/Resolving]
  - Intestinal stenosis [Recovered/Resolved]
  - Large intestinal ulcer [Recovering/Resolving]
  - Chronic gastritis [Recovering/Resolving]
